FAERS Safety Report 8756336 (Version 1)
Quarter: 2012Q4

REPORT INFORMATION
  Report Type: 
  Country: US (occurrence: US)
  Receive Date: 20120828
  Receipt Date: 20120828
  Transmission Date: 20130627
  Serious: No
  Sender: FDA-Public Use
  Company Number: US-009507513-1208USA001196

PATIENT

DRUGS (1)
  1. IMPLANON [Suspect]
     Indication: CONTRACEPTION
     Dosage: UNK
     Dates: start: 20090801

REACTIONS (4)
  - Device difficult to use [Unknown]
  - Complication of device insertion [Unknown]
  - Medical device complication [Unknown]
  - No adverse event [Unknown]
